FAERS Safety Report 5024669-6 (Version None)
Quarter: 2006Q2

REPORT INFORMATION
  Report Type: 
  Country: None (occurrence: None)
  Receive Date: 20060613
  Receipt Date: 20060428
  Transmission Date: 20061013
  Serious: Yes (Hospitalization)
  Sender: FDA-Public Use
  Company Number: US-ROCHE-446191

PATIENT
  Age: 53 Year
  Sex: Male
  Weight: 96.4 kg

DRUGS (24)
  1. PEG-INTERFERON ALFA 2A (RO 25-8310) [Suspect]
     Indication: HEPATITIS C
     Route: 058
     Dates: start: 20060303, end: 20060427
  2. PEG-INTERFERON ALFA 2A (RO 25-8310) [Suspect]
     Route: 058
     Dates: end: 20060531
  3. RIBAVIRIN [Suspect]
     Indication: HEPATITIS C
     Route: 048
     Dates: start: 20060303, end: 20060427
  4. RIBAVIRIN [Suspect]
     Route: 048
  5. LABETALOL [Suspect]
     Indication: HYPERTENSION
     Route: 065
     Dates: start: 20060303
  6. CALCIUM GLUCONATE [Concomitant]
     Dates: start: 20051118
  7. ASPIRIN [Concomitant]
     Dates: start: 20051118, end: 20060525
  8. BACTRIM [Concomitant]
     Dosage: REPORTED AS '160/WEEK'
     Dates: start: 20051118
  9. VICODIN [Concomitant]
     Dates: start: 20051118
  10. VALCYTE [Concomitant]
     Dates: start: 20051121
  11. TRAMADOL HCL [Concomitant]
     Dates: start: 20051128
  12. MAGNESIUM [Concomitant]
     Dates: start: 20051205
  13. LACTULOSE [Concomitant]
     Dates: start: 20051207
  14. PREDNISONE [Concomitant]
     Dates: start: 20051210
  15. ACIPHEX [Concomitant]
     Dates: start: 20051229
  16. NYSTATIN [Concomitant]
     Dates: start: 20060130
  17. CYCLOSPORINE [Concomitant]
     Dosage: (USE MODIFIED)
     Dates: start: 20060513
  18. LASIX [Concomitant]
     Dates: start: 20060301
  19. POTASSIUM [Concomitant]
     Dates: start: 20060301
  20. PAXIL [Concomitant]
     Dates: start: 20060413
  21. DESYREL [Concomitant]
     Dates: start: 20060413
  22. CIPRO [Concomitant]
     Dates: start: 20060425
  23. CARDIZEM [Concomitant]
     Dates: start: 20060429
  24. LOPRESSOR [Concomitant]
     Dates: start: 20060429

REACTIONS (8)
  - BLOOD BILIRUBIN INCREASED [None]
  - COLD SWEAT [None]
  - DISEASE RECURRENCE [None]
  - DIZZINESS [None]
  - DYSPNOEA [None]
  - HEPATIC ENZYME INCREASED [None]
  - HEPATITIS C [None]
  - ORTHOSTATIC HYPOTENSION [None]
